FAERS Safety Report 20719357 (Version 4)
Quarter: 2023Q1

REPORT INFORMATION
  Report Type: Report from Study
  Country: US (occurrence: US)
  Receive Date: 20220418
  Receipt Date: 20230131
  Transmission Date: 20230418
  Serious: Yes (Other)
  Sender: FDA-Public Use
  Company Number: US-KOREA IPSEN Pharma-2022-10335

PATIENT
  Age: 38 Year
  Sex: Female

DRUGS (3)
  1. SOMATULINE DEPOT [Suspect]
     Active Substance: LANREOTIDE ACETATE
     Indication: Carcinoid tumour of the small bowel
     Dosage: 120MG/ 0.5ML
     Route: 058
     Dates: start: 2017, end: 2021
  2. SOMATULINE DEPOT [Suspect]
     Active Substance: LANREOTIDE ACETATE
     Dosage: 120MG/ 0.5ML
     Route: 058
  3. SOMATULINE DEPOT [Suspect]
     Active Substance: LANREOTIDE ACETATE
     Dosage: 120MG/0.5MG
     Route: 058
     Dates: start: 2017

REACTIONS (14)
  - Cyst rupture [Recovered/Resolved]
  - Neoplasm [Not Recovered/Not Resolved]
  - Blood iron decreased [Recovering/Resolving]
  - Alopecia [Recovered/Resolved]
  - Thyroid disorder [Recovered/Resolved]
  - Flushing [Recovered/Resolved]
  - Diarrhoea [Recovering/Resolving]
  - Constipation [Recovering/Resolving]
  - Nodule [Recovering/Resolving]
  - Abdominal pain [Recovered/Resolved]
  - Emotional disorder [Not Recovered/Not Resolved]
  - Hypotension [Recovered/Resolved]
  - Off label use [Unknown]
  - Iron deficiency [Recovering/Resolving]

NARRATIVE: CASE EVENT DATE: 20180101
